FAERS Safety Report 19747780 (Version 1)
Quarter: 2021Q3

REPORT INFORMATION
  Report Type: Spontaneous
  Country: US (occurrence: US)
  Receive Date: 20210826
  Receipt Date: 20210826
  Transmission Date: 20211014
  Serious: No
  Sender: FDA-Public Use
  Company Number: US-BLUEPRINT MEDICINES CORPORATION-SP-US-2021-001313

PATIENT
  Sex: Male

DRUGS (2)
  1. AYVAKIT [Suspect]
     Active Substance: AVAPRITINIB
     Indication: GASTROINTESTINAL STROMAL TUMOUR
     Dosage: TAKE 1 TABLET BY MOUTH EVERY OTHER DAY
     Route: 048
     Dates: start: 20210612, end: 20210812
  2. AYVAKIT [Suspect]
     Active Substance: AVAPRITINIB
     Dosage: TAKE 1 TABLET BY MOUTH EVERY OTHER DAY
     Route: 048
     Dates: start: 20210612, end: 20210811

REACTIONS (4)
  - Disease progression [Not Recovered/Not Resolved]
  - Drug ineffective [Unknown]
  - Speech disorder [Not Recovered/Not Resolved]
  - Off label use [Unknown]
